FAERS Safety Report 7794324-8 (Version None)
Quarter: 2011Q4

REPORT INFORMATION
  Report Type: 
  Country: None (occurrence: None)
  Receive Date: 20111004
  Receipt Date: 20110927
  Transmission Date: 20120403
  Serious: Yes (Other)
  Sender: FDA-Public Use
  Company Number: US-PFIZER INC-2011211999

PATIENT
  Sex: Female

DRUGS (2)
  1. TRAZODONE HCL [Suspect]
  2. EFFEXOR XR [Suspect]
     Dosage: 225 MG, DAILY

REACTIONS (1)
  - DEPRESSION [None]
